FAERS Safety Report 24580135 (Version 1)
Quarter: 2024Q4

REPORT INFORMATION
  Report Type: Report from Study
  Country: EG (occurrence: EG)
  Receive Date: 20241105
  Receipt Date: 20241105
  Transmission Date: 20250115
  Serious: Yes (Other)
  Sender: SANDOZ
  Company Number: EG-SANDOZ-SDZ2024EG091656

PATIENT
  Sex: Male
  Weight: 62 kg

DRUGS (1)
  1. HYRIMOZ [Suspect]
     Active Substance: ADALIMUMAB-ADAZ
     Indication: Ankylosing spondylitis
     Dosage: 40 MG, EVERY OTHER WEEK
     Route: 058
     Dates: start: 20230909, end: 20240527

REACTIONS (4)
  - Brain fog [Not Recovered/Not Resolved]
  - Vasculitis [Recovering/Resolving]
  - Scar [Recovering/Resolving]
  - Impaired healing [Recovering/Resolving]

NARRATIVE: CASE EVENT DATE: 20230101
